FAERS Safety Report 12221190 (Version 1)
Quarter: 2016Q1

REPORT INFORMATION
  Report Type: Report from Study
  Country: JP (occurrence: JP)
  Receive Date: 20160330
  Receipt Date: 20160330
  Transmission Date: 20160526
  Serious: Yes (Other)
  Sender: FDA-Public Use
  Company Number: JP-EISAI MEDICAL RESEARCH-EC-2016-015608

PATIENT
  Age: 13 Year
  Sex: Male
  Weight: 35 kg

DRUGS (20)
  1. E2080 (TABLETS) [Suspect]
     Active Substance: RUFINAMIDE
     Indication: LENNOX-GASTAUT SYNDROME
     Route: 048
     Dates: start: 20131009, end: 20131023
  2. E2080 (TABLETS) [Suspect]
     Active Substance: RUFINAMIDE
     Route: 048
     Dates: start: 20140321, end: 20140407
  3. EXCEGRAN [Concomitant]
     Active Substance: ZONISAMIDE
  4. E2080 (TABLETS) [Suspect]
     Active Substance: RUFINAMIDE
     Route: 048
     Dates: start: 20131126, end: 20131217
  5. E2080 (TABLETS) [Suspect]
     Active Substance: RUFINAMIDE
     Route: 048
     Dates: start: 20131231, end: 20140113
  6. E2080 (TABLETS) [Suspect]
     Active Substance: RUFINAMIDE
     Route: 048
     Dates: start: 20140114, end: 20140127
  7. E2080 (TABLETS) [Suspect]
     Active Substance: RUFINAMIDE
     Route: 048
     Dates: start: 20140422, end: 20140508
  8. E2080 (TABLETS) [Suspect]
     Active Substance: RUFINAMIDE
     Route: 048
     Dates: start: 20140307, end: 20140320
  9. E2080 (TABLETS) [Suspect]
     Active Substance: RUFINAMIDE
     Route: 048
     Dates: start: 20141129
  10. E2080 (TABLETS) [Suspect]
     Active Substance: RUFINAMIDE
     Route: 048
     Dates: start: 20140509, end: 20140604
  11. E2080 (TABLETS) [Suspect]
     Active Substance: RUFINAMIDE
     Route: 048
     Dates: start: 20140605, end: 20141128
  12. E2080 (TABLETS) [Suspect]
     Active Substance: RUFINAMIDE
     Route: 048
     Dates: start: 20140214, end: 20140227
  13. LAMICTAL [Concomitant]
     Active Substance: LAMOTRIGINE
  14. E2080 (TABLETS) [Suspect]
     Active Substance: RUFINAMIDE
     Route: 048
     Dates: start: 20140128, end: 20140213
  15. E2080 (TABLETS) [Suspect]
     Active Substance: RUFINAMIDE
     Route: 048
     Dates: start: 20140228, end: 20140306
  16. E2080 (TABLETS) [Suspect]
     Active Substance: RUFINAMIDE
     Route: 048
     Dates: start: 20140408, end: 20140421
  17. E2080 (TABLETS) [Suspect]
     Active Substance: RUFINAMIDE
     Route: 048
     Dates: start: 20131024, end: 20131111
  18. E2080 (TABLETS) [Suspect]
     Active Substance: RUFINAMIDE
     Route: 048
     Dates: start: 20131112, end: 20131125
  19. E2080 (TABLETS) [Suspect]
     Active Substance: RUFINAMIDE
     Route: 048
     Dates: start: 20131218, end: 20131230
  20. SELENICA-R [Concomitant]
     Active Substance: VALPROATE SODIUM

REACTIONS (1)
  - Status epilepticus [Recovering/Resolving]

NARRATIVE: CASE EVENT DATE: 20141106
